FAERS Safety Report 9825575 (Version 1)
Quarter: 2014Q1

REPORT INFORMATION
  Report Type: Spontaneous
  Country: US (occurrence: US)
  Receive Date: 20140117
  Receipt Date: 20140117
  Transmission Date: 20141002
  Serious: Yes (Other)
  Sender: FDA-Public Use
  Company Number: US-SA-2014SA006710

PATIENT
  Sex: Female

DRUGS (2)
  1. LANTUS [Suspect]
     Dosage: DOSE:60 UNIT(S)
     Route: 058
     Dates: start: 201001
  2. NOVOLOG [Suspect]
     Route: 065
     Dates: start: 201001

REACTIONS (2)
  - Myocardial infarction [Unknown]
  - Cerebrovascular accident [Unknown]
